FAERS Safety Report 16856239 (Version 2)
Quarter: 2019Q3

REPORT INFORMATION
  Report Type: Spontaneous
  Country: US (occurrence: US)
  Receive Date: 20190926
  Receipt Date: 20190930
  Transmission Date: 20191005
  Serious: No
  Sender: FDA-Public Use
  Company Number: US-PFIZER INC-2019412616

PATIENT
  Age: 7 Decade
  Sex: Male

DRUGS (3)
  1. GABAPENTIN. [Suspect]
     Active Substance: GABAPENTIN
     Dosage: UNK
  2. PAXIL [Concomitant]
     Active Substance: PAROXETINE HYDROCHLORIDE
     Dosage: UNK
  3. SINEMET [Concomitant]
     Active Substance: CARBIDOPA\LEVODOPA
     Dosage: UNK

REACTIONS (12)
  - Gait disturbance [Unknown]
  - Dyspnoea [Unknown]
  - Vision blurred [Unknown]
  - Muscular weakness [Unknown]
  - Movement disorder [Unknown]
  - Balance disorder [Unknown]
  - Diplopia [Unknown]
  - Muscle rigidity [Unknown]
  - Hypotension [Unknown]
  - Feeling hot [Unknown]
  - Agitation [Unknown]
  - Asthenia [Unknown]
